FAERS Safety Report 21987345 (Version 1)
Quarter: 2023Q1

REPORT INFORMATION
  Report Type: Spontaneous
  Country: RU (occurrence: None)
  Receive Date: 20230214
  Receipt Date: 20230214
  Transmission Date: 20230418
  Serious: Yes (Hospitalization)
  Sender: FDA-Public Use
  Company Number: RU-ROCHE-3281184

PATIENT
  Sex: Female

DRUGS (1)
  1. OCREVUS [Suspect]
     Active Substance: OCRELIZUMAB
     Indication: Product used for unknown indication
     Route: 065

REACTIONS (7)
  - Throat irritation [Unknown]
  - Ear discomfort [Unknown]
  - Cough [Unknown]
  - Blood pressure decreased [Unknown]
  - Flushing [Unknown]
  - Erythema [Unknown]
  - Headache [Unknown]
